FAERS Safety Report 22043471 (Version 10)
Quarter: 2024Q4

REPORT INFORMATION
  Report Type: Report from Study
  Country: US (occurrence: US)
  Receive Date: 20230228
  Receipt Date: 20241120
  Transmission Date: 20250114
  Serious: Yes (Other)
  Sender: RECORDATI
  Company Number: US-RECORDATI-2022005490

PATIENT

DRUGS (40)
  1. ISTURISA [Suspect]
     Active Substance: OSILODROSTAT PHOSPHATE
     Indication: Pituitary-dependent Cushing^s syndrome
     Dosage: 1.5 MG IN THE MORNING AND 1 MG AT NIGHT, BID
     Route: 048
     Dates: start: 202208, end: 2022
  2. ISTURISA [Suspect]
     Active Substance: OSILODROSTAT PHOSPHATE
     Dosage: 1.5 MG IN MORNING AND 1 MG IN THE EVENING, BID
     Route: 048
     Dates: start: 20220913, end: 202301
  3. ISTURISA [Suspect]
     Active Substance: OSILODROSTAT PHOSPHATE
     Dosage: 1.5 MG IN MORNING AND 1 MG IN THE EVENING, BID
     Route: 048
     Dates: start: 20230203, end: 2023
  4. ISTURISA [Suspect]
     Active Substance: OSILODROSTAT PHOSPHATE
     Dosage: INCREASED DOSE BY 1 MG TO PREVIOUS DOSE (2.5 MG)
     Route: 048
     Dates: start: 2023, end: 2023
  5. ISTURISA [Suspect]
     Active Substance: OSILODROSTAT PHOSPHATE
     Dosage: 1 MG TABLET: 2 TABLETS IN THE MORNING AND 1.5 TABLET IN THE NIGHT, BID
     Route: 048
     Dates: start: 2023
  6. ISTURISA [Suspect]
     Active Substance: OSILODROSTAT PHOSPHATE
     Dosage: 1 MG AM AND 1.5 MG PM, BID
     Route: 048
     Dates: end: 20240930
  7. ISTURISA [Suspect]
     Active Substance: OSILODROSTAT PHOSPHATE
     Dosage: 1 MG AM AND 2 MG PM, BID
     Route: 048
     Dates: start: 20241018
  8. AMILORIDE HCL [Suspect]
     Active Substance: AMILORIDE HYDROCHLORIDE
     Indication: Hypertension
     Dosage: 7.5 MILLIGRAM, QD (AM) TABLET 5 MG
     Route: 048
     Dates: start: 20190929
  9. CARVEDILOL [Suspect]
     Active Substance: CARVEDILOL
     Indication: Hypertension
     Dosage: 1.56MG TO 3.125MG BID, TABLET
     Route: 048
  10. HYDRALAZINE [Suspect]
     Active Substance: HYDRALAZINE HYDROCHLORIDE
     Indication: Hypertension
     Dosage: 12.5 MILLIGRAM, QD PRN, TABLET 25 MG
     Route: 048
     Dates: start: 20190929
  11. EFFEXOR [Suspect]
     Active Substance: VENLAFAXINE HYDROCHLORIDE
     Indication: Product used for unknown indication
     Dosage: 37.5 MILLIGRAM (TOOK FOR ONE DAY)
     Dates: start: 20230213, end: 20230213
  12. PEPPERMINT OIL [Concomitant]
     Active Substance: PEPPERMINT OIL
     Indication: Diarrhoea
     Dosage: 180 MILLIGRAM (CAPSULE EXTENDED RELEASE) WITH MEALS
     Route: 048
     Dates: start: 20220707
  13. ARGININE [Concomitant]
     Active Substance: ARGININE
     Indication: Anaemia
     Dosage: 1000 MG, PRN,  MAXIMUM STRENGTH ORAL TA
     Route: 048
     Dates: start: 20190929
  14. ARGININE [Concomitant]
     Active Substance: ARGININE
     Dosage: 500 MILLIGRAM, BID, TABLET 500 MG
     Route: 048
     Dates: start: 20220704
  15. LOPERAMIDE [Concomitant]
     Active Substance: LOPERAMIDE
     Indication: Diarrhoea
     Dosage: 2 MILLIGRAM, PRN, CAPSULE
     Route: 048
     Dates: start: 20190929
  16. LORAZEPAM [Concomitant]
     Active Substance: LORAZEPAM
     Indication: Anxiety
     Dosage: 1 MILLIGRAM, PRN, TABLET
     Route: 048
     Dates: start: 20210303
  17. MELATONIN [Concomitant]
     Active Substance: MELATONIN
     Indication: Insomnia
     Dosage: 1 MILLIGRAM, BEDTIME
     Route: 048
     Dates: start: 20190929
  18. OMEGA 3 [Concomitant]
     Active Substance: CAPSAICIN
     Indication: Blood cholesterol increased
     Dosage: 1000 MILLIGRAM, QD, CAPSULE
     Route: 048
  19. OPIUM [Concomitant]
     Active Substance: OPIUM
     Indication: Diarrhoea
     Dosage: 10 MG/ML, PRN, TINCTURE
     Route: 048
  20. PEPPERMINT OIL [Concomitant]
     Active Substance: PEPPERMINT OIL
     Indication: Irritable bowel syndrome
     Dosage: 1 DOSAGE FORM, QD, TABLET
  21. PEPTO-BISMOL [Concomitant]
     Active Substance: BISMUTH SUBSALICYLATE
     Indication: Diarrhoea
     Dosage: 260 MILLIGRAM, PRN (CHEWABLE PREPARATION)
     Route: 048
  22. PEPTO-BISMOL [Concomitant]
     Active Substance: BISMUTH SUBSALICYLATE
     Indication: Abdominal discomfort
     Dosage: 262 MG, PRN, TABLET CHEWABLE 2
     Route: 048
     Dates: start: 20160105
  23. QUESTRAN [Concomitant]
     Active Substance: CHOLESTYRAMINE
     Indication: Diarrhoea
     Dosage: 4 GRAM, QD
     Route: 048
  24. VITAMIN B COMPLEX [Concomitant]
     Active Substance: CYANOCOBALAMIN\DEXPANTHENOL\NIACINAMIDE\PYRIDOXINE HYDROCHLORIDE\RIBOFLAVIN 5^-PHOSPHATE SODIUM\THIA
     Indication: Hypovitaminosis
     Dosage: UNK, QD, TABLET
     Route: 048
  25. AMLODIPINE [Concomitant]
     Active Substance: AMLODIPINE BESYLATE
     Indication: Product used for unknown indication
     Dosage: 2.5 MG, QD, TABLET 2.5
     Route: 048
     Dates: start: 20230117, end: 20241001
  26. AMLODIPINE [Concomitant]
     Active Substance: AMLODIPINE BESYLATE
     Dosage: 2.5 MG, QD, TABLET 2.5
     Route: 048
     Dates: start: 20241001
  27. CHOLESTYRAMINE [Concomitant]
     Active Substance: CHOLESTYRAMINE
     Indication: Product used for unknown indication
     Dosage: UNK
  28. ACETYLCYSTEINE [Concomitant]
     Active Substance: ACETYLCYSTEINE
     Indication: Product used for unknown indication
     Dosage: 600 MG, QD, CAPSULE 600
     Route: 048
     Dates: start: 20200701
  29. SACCHAROMYCES CEREVISIAE [Concomitant]
     Active Substance: SACCHAROMYCES CEREVISIAE
     Indication: Product used for unknown indication
     Dosage: 250 MG, QD, CAPSULE
     Route: 048
     Dates: start: 20220701
  30. TAURINE [Concomitant]
     Active Substance: TAURINE
     Indication: Product used for unknown indication
     Dosage: 1000 MG, QD, CAPSULE 500 MG
     Route: 048
     Dates: start: 20200601
  31. TYLENOL EXTRA STRENGTH [Concomitant]
     Active Substance: ACETAMINOPHEN
     Indication: Product used for unknown indication
     Dosage: 500 MG, PRN, TABLET
     Route: 048
     Dates: start: 20210705
  32. HERBALS\WITHANIA SOMNIFERA ROOT [Concomitant]
     Active Substance: HERBALS\WITHANIA SOMNIFERA ROOT
     Indication: Product used for unknown indication
     Dosage: 500 MG, QD,  CAPSULE 500 MG
     Route: 048
     Dates: start: 20220704
  33. DIETARY SUPPLEMENT\HERBALS\INDIAN FRANKINCENSE [Concomitant]
     Active Substance: DIETARY SUPPLEMENT\HERBALS\INDIAN FRANKINCENSE
     Indication: Product used for unknown indication
     Dosage: 307 MG, QD, TABLET 307 MG
     Route: 048
     Dates: start: 20230724
  34. Cortisol Manager [Concomitant]
     Indication: Product used for unknown indication
     Dosage: 1 DOSAGE FORM, QD, TABLET
     Route: 048
     Dates: start: 20220704
  35. Culturelle Digestive Daily Probiotic Chewables [Concomitant]
     Indication: Product used for unknown indication
     Dosage: 1 DOSAGE FORM, QD, CAPSULE
     Route: 048
     Dates: start: 20220704
  36. GINGER [Concomitant]
     Active Substance: GINGER
     Indication: Product used for unknown indication
     Dosage: 500 MG, QD, CAPSULE 500 MG
     Route: 048
     Dates: start: 20220704
  37. GLUCOSAMINE\GLUCOSAMINE SULFATE [Concomitant]
     Active Substance: GLUCOSAMINE\GLUCOSAMINE SULFATE
     Indication: Product used for unknown indication
     Dosage: 100 MG, QD, BOSWELLIA
     Route: 048
     Dates: start: 20230703
  38. GLYCINE [Concomitant]
     Active Substance: GLYCINE
     Indication: Product used for unknown indication
     Dosage: 1000 MG, QD, 500 ORAL PACKET 500 MG
     Route: 048
     Dates: start: 20230701, end: 202307
  39. GLYCINE [Concomitant]
     Active Substance: GLYCINE
     Dosage: 1000 MG, QD, 500 ORAL PACKET 500 MG
     Route: 048
     Dates: start: 20230724
  40. VITAMINS [Concomitant]
     Active Substance: VITAMINS
     Indication: Product used for unknown indication
     Dosage: UNK, QD, TABLET
     Route: 048
     Dates: start: 20230511

REACTIONS (33)
  - Insomnia [Not Recovered/Not Resolved]
  - Fatigue [Not Recovered/Not Resolved]
  - Nausea [Not Recovered/Not Resolved]
  - Blood sodium decreased [Unknown]
  - Feeling abnormal [Not Recovered/Not Resolved]
  - Blood creatinine decreased [Unknown]
  - Muscle atrophy [Unknown]
  - Ear infection [Not Recovered/Not Resolved]
  - Nervousness [Unknown]
  - Balance disorder [Not Recovered/Not Resolved]
  - Paraesthesia [Not Recovered/Not Resolved]
  - Visual impairment [Not Recovered/Not Resolved]
  - Blood urea increased [Not Recovered/Not Resolved]
  - Muscular weakness [Not Recovered/Not Resolved]
  - Skin burning sensation [Not Recovered/Not Resolved]
  - Nasopharyngitis [Not Recovered/Not Resolved]
  - Depression [Unknown]
  - Urinary tract infection [Not Recovered/Not Resolved]
  - Hypertension [Not Recovered/Not Resolved]
  - Anxiety [Not Recovered/Not Resolved]
  - Back pain [Unknown]
  - Myalgia [Unknown]
  - Headache [Not Recovered/Not Resolved]
  - Asthenia [Not Recovered/Not Resolved]
  - Dizziness [Not Recovered/Not Resolved]
  - Nausea [Unknown]
  - Fatigue [Unknown]
  - Diarrhoea [Unknown]
  - Abdominal pain [Unknown]
  - Decreased appetite [Unknown]
  - Abdominal discomfort [Unknown]
  - Aspartate aminotransferase increased [Not Recovered/Not Resolved]
  - Wrong technique in product usage process [Recovered/Resolved]

NARRATIVE: CASE EVENT DATE: 20220101
